FAERS Safety Report 6259702-7 (Version None)
Quarter: 2009Q3

REPORT INFORMATION
  Report Type: 
  Country: None (occurrence: None)
  Receive Date: 20090706
  Receipt Date: 20090706
  Transmission Date: 20100115
  Serious: No
  Sender: FDA-Public Use
  Company Number: None

PATIENT
  Sex: Female
  Weight: 51.7101 kg

DRUGS (1)
  1. DIVALPROEX EXTENDED-RELEASE [Suspect]
     Indication: BIPOLAR DISORDER
     Dosage: 1 TABLET 250 MG ONCE AT NIGHT PO
     Route: 048
     Dates: start: 20090624, end: 20090626

REACTIONS (9)
  - ANXIETY [None]
  - BIPOLAR I DISORDER [None]
  - CRYING [None]
  - DRUG INEFFECTIVE [None]
  - IRRITABILITY [None]
  - MOOD ALTERED [None]
  - PARANOIA [None]
  - PRODUCT SUBSTITUTION ISSUE [None]
  - TACHYPHRENIA [None]
